FAERS Safety Report 25050325 (Version 1)
Quarter: 2025Q1

REPORT INFORMATION
  Report Type: Spontaneous
  Country: US (occurrence: None)
  Receive Date: 20250306
  Receipt Date: 20250306
  Transmission Date: 20250408
  Serious: Yes (Other)
  Sender: FDA-CTU
  Company Number: None

PATIENT
  Age: 11 Day
  Sex: Female
  Weight: 3.6 kg

DRUGS (1)
  1. BEYFORTUS [Suspect]
     Active Substance: NIRSEVIMAB-ALIP
     Dates: start: 20250227, end: 20250227

REACTIONS (9)
  - Rash macular [None]
  - Rash [None]
  - Swelling of eyelid [None]
  - Erythema of eyelid [None]
  - Agitation [None]
  - Sleep disorder [None]
  - Flatulence [None]
  - Dyschezia [None]
  - Increased appetite [None]

NARRATIVE: CASE EVENT DATE: 20250227
